FAERS Safety Report 8803784 (Version 1)
Quarter: 2012Q4

REPORT INFORMATION
  Report Type: 
  Country: FR (occurrence: FR)
  Receive Date: 20120924
  Receipt Date: 20120924
  Transmission Date: 20130627
  Serious: Yes (Hospitalization)
  Sender: FDA-Public Use
  Company Number: FR-JNJFOC-20120907357

PATIENT
  Age: 42 Year
  Sex: Male

DRUGS (7)
  1. IXPRIM [Suspect]
     Indication: PRODUCT USED FOR UNKNOWN INDICATION
     Route: 048
     Dates: start: 20120811
  2. IXPRIM [Suspect]
     Indication: PRODUCT USED FOR UNKNOWN INDICATION
     Route: 048
     Dates: start: 2008, end: 20120809
  3. HYDROCORTISONE [Concomitant]
     Route: 048
  4. LOXEN [Concomitant]
     Route: 048
  5. BISOPROLOL [Concomitant]
     Route: 048
  6. TARDYFERON [Concomitant]
     Indication: IRON DEFICIENCY ANAEMIA
     Route: 048
  7. PARIET [Concomitant]
     Route: 048

REACTIONS (2)
  - Muscle twitching [Recovered/Resolved]
  - Anxiety [Recovering/Resolving]
